FAERS Safety Report 23322962 (Version 1)
Quarter: 2023Q4

REPORT INFORMATION
  Report Type: Other
  Country: US (occurrence: None)
  Receive Date: 20231220
  Receipt Date: 20231220
  Transmission Date: 20240110
  Serious: No
  Sender: FDA-Public Use
  Company Number: US-ROCHE-3226511

PATIENT
  Age: 45 Year
  Sex: Male

DRUGS (4)
  1. RITUXIMAB [Suspect]
     Active Substance: RITUXIMAB
     Indication: Glomerulonephritis membranous
     Route: 065
  2. CYCLOSPORINE [Concomitant]
     Active Substance: CYCLOSPORINE
     Indication: Glomerulonephritis membranous
  3. CYCLOPHOSPHAMIDE [Concomitant]
     Active Substance: CYCLOPHOSPHAMIDE
     Indication: Glomerulonephritis membranous
  4. OFATUMUMAB [Concomitant]
     Active Substance: OFATUMUMAB
     Indication: Glomerulonephritis membranous
     Dosage: THREE MONTHS

REACTIONS (1)
  - Neuropathy peripheral [Unknown]
